FAERS Safety Report 7276808-4 (Version None)
Quarter: 2011Q1

REPORT INFORMATION
  Report Type: 
  Country: None (occurrence: None)
  Receive Date: 20110207
  Receipt Date: 20110128
  Transmission Date: 20110831
  Serious: Yes (Hospitalization, Other)
  Sender: FDA-Public Use
  Company Number: DE-BIOGENIDEC-2010BI034862

PATIENT
  Age: 48 Year
  Sex: Male
  Weight: 75 kg

DRUGS (5)
  1. TYSABRI [Suspect]
     Indication: MULTIPLE SCLEROSIS
     Route: 042
     Dates: start: 20061201
  2. PREGABALINE [Concomitant]
     Indication: NEURALGIA
     Route: 048
     Dates: start: 20091201, end: 20100531
  3. TYSABRI [Suspect]
     Route: 042
     Dates: start: 20100831
  4. PHENOBARBITAL [Concomitant]
     Indication: NEURALGIA
     Route: 048
     Dates: start: 20100525
  5. METHYLPREDNISOLONE [Concomitant]
     Route: 042
     Dates: start: 20100608, end: 20100831

REACTIONS (1)
  - PROSTATE CANCER [None]
